FAERS Safety Report 9179342 (Version 1)
Quarter: 2012Q4

REPORT INFORMATION
  Report Type: 
  Country: US (occurrence: US)
  Receive Date: 20121029
  Receipt Date: 20121029
  Transmission Date: 20130627
  Serious: No
  Sender: FDA-Public Use
  Company Number: US-AMGEN-USASP2012052734

PATIENT
  Age: 67 Year
  Sex: Female
  Weight: 81.63 kg

DRUGS (10)
  1. ENBREL [Suspect]
     Indication: PRODUCT USED FOR UNKNOWN INDICATION
     Dosage: 25 mg, 2 times/wk
     Route: 058
  2. EVISTA [Concomitant]
     Dosage: 60 mg, UNK
  3. LISINOPRIL [Concomitant]
     Dosage: 10 mg, UNK
  4. CITALOPRAM [Concomitant]
     Dosage: 10 mg, UNK
  5. SIMVASTATIN [Concomitant]
     Dosage: 10 mg, UNK
  6. ASPIRIN [Concomitant]
     Dosage: 81 mg, UNK
  7. TACLONEX [Concomitant]
     Dosage: UNK
  8. CYANOCOBALAMIN [Concomitant]
     Dosage: 1000 UNK, UNK
  9. ABILIFY [Concomitant]
     Dosage: 2 mg, UNK
  10. MULTIVITAMINS, PLAIN [Concomitant]
     Dosage: UNK

REACTIONS (1)
  - Pustular psoriasis [Unknown]
